FAERS Safety Report 13305671 (Version 1)
Quarter: 2017Q1

REPORT INFORMATION
  Report Type: Spontaneous
  Country: None (occurrence: US)
  Receive Date: 20170308
  Receipt Date: 20170308
  Transmission Date: 20170428
  Serious: No
  Sender: FDA-Public Use
  Company Number: US-TORRENT-00001351

PATIENT
  Sex: Female

DRUGS (1)
  1. DONEPEZIL HCL [Suspect]
     Active Substance: DONEPEZIL HYDROCHLORIDE

REACTIONS (3)
  - Malaise [Unknown]
  - Fatigue [Unknown]
  - Vomiting [Unknown]
